FAERS Safety Report 15539412 (Version 3)
Quarter: 2018Q4

REPORT INFORMATION
  Report Type: Spontaneous
  Country: US (occurrence: US)
  Receive Date: 20181022
  Receipt Date: 20181023
  Transmission Date: 20190205
  Serious: No
  Sender: FDA-Public Use
  Company Number: US-LUPIN PHARMACEUTICALS INC.-2018-06783

PATIENT
  Age: 40 Year
  Sex: Female
  Weight: 88.45 kg

DRUGS (4)
  1. PREDNISONE. [Concomitant]
     Active Substance: PREDNISONE
     Indication: COMPLEX REGIONAL PAIN SYNDROME
     Dosage: UNK
     Route: 065
  2. DULOXETINE. [Suspect]
     Active Substance: DULOXETINE
     Indication: COMPLEX REGIONAL PAIN SYNDROME
     Dosage: UNK
     Route: 065
  3. GABAPENTIN TABLET [Suspect]
     Active Substance: GABAPENTIN
     Dosage: 300 MG, QD (IN EVENING) RESTARTED
     Route: 048
     Dates: start: 201807
  4. GABAPENTIN TABLET [Suspect]
     Active Substance: GABAPENTIN
     Indication: COMPLEX REGIONAL PAIN SYNDROME
     Dosage: 300 MG, QD (IN EVENING)
     Route: 048
     Dates: start: 201610

REACTIONS (1)
  - Drug ineffective [Unknown]
